FAERS Safety Report 9391282 (Version 4)
Quarter: 2013Q3

REPORT INFORMATION
  Report Type: Spontaneous
  Country: JP (occurrence: JP)
  Receive Date: 20130709
  Receipt Date: 20130910
  Transmission Date: 20140515
  Serious: Yes (Other)
  Sender: FDA-Public Use
  Company Number: JP-PFIZER INC-2013166320

PATIENT
  Age: 66 Year
  Sex: Female

DRUGS (8)
  1. LIPITOR [Suspect]
     Dosage: UNK
     Route: 048
  2. NORVASC [Suspect]
     Dosage: 5 MG, DAILY
     Route: 048
  3. BAYASPIRIN [Suspect]
     Dosage: UNK
     Route: 048
  4. RADEN [Suspect]
     Dosage: UNK
     Route: 048
  5. RANCLIC [Suspect]
     Dosage: UNK
     Route: 048
  6. ISOMENYL [Suspect]
     Dosage: UNK
     Route: 048
  7. ADETPHOS [Suspect]
     Dosage: UNK
     Route: 048
  8. ISODINE [Suspect]
     Dosage: UNK
     Route: 061

REACTIONS (1)
  - Ageusia [Unknown]
